FAERS Safety Report 14924515 (Version 1)
Quarter: 2018Q2

REPORT INFORMATION
  Report Type: Spontaneous
  Country: IN (occurrence: IN)
  Receive Date: 20180522
  Receipt Date: 20180522
  Transmission Date: 20180711
  Serious: Yes (Other)
  Sender: FDA-Public Use
  Company Number: IN-ALLERGAN-1826873US

PATIENT
  Sex: Female

DRUGS (1)
  1. PROGESTERONE UNK [Suspect]
     Active Substance: PROGESTERONE
     Indication: PROPHYLAXIS
     Dosage: UNK
     Route: 065

REACTIONS (4)
  - Pregnancy [Unknown]
  - Off label use [Unknown]
  - Abortion spontaneous [Unknown]
  - Drug ineffective for unapproved indication [Unknown]
